FAERS Safety Report 4733349-3 (Version None)
Quarter: 2005Q3

REPORT INFORMATION
  Report Type: 
  Country: None (occurrence: None)
  Receive Date: 20050801
  Receipt Date: 20050801
  Transmission Date: 20060218
  Serious: Yes (Life-Threatening)
  Sender: FDA-Public Use
  Company Number: None

PATIENT
  Age: 78 Year
  Sex: Male
  Weight: 83.4 kg

DRUGS (3)
  1. HALOPERIDOL [Suspect]
     Indication: AGITATION
     Dosage: 2; 4 MG IV
     Route: 042
     Dates: start: 20050323
  2. HALOPERIDOL [Suspect]
     Indication: AGITATION
     Dosage: 2; 4 MG IV
     Route: 042
     Dates: start: 20050324
  3. SUCCINYL CHOLINE 20MG / ML ABBOTT [Suspect]
     Indication: INTUBATION
     Dosage: 40 MG IV
     Route: 042
     Dates: start: 20050302

REACTIONS (3)
  - BODY TEMPERATURE INCREASED [None]
  - DYSPNOEA [None]
  - NEUROLEPTIC MALIGNANT SYNDROME [None]
